FAERS Safety Report 9804363 (Version 3)
Quarter: 2015Q1

REPORT INFORMATION
  Report Type: Spontaneous
  Country: US (occurrence: None)
  Receive Date: 20140106
  Receipt Date: 20150114
  Transmission Date: 20150721
  Serious: Yes (Hospitalization)
  Sender: FDA-Public Use
  Company Number: KAD201401-000008

PATIENT
  Age: 60 Year
  Sex: Female

DRUGS (11)
  1. SOFOSBUVIR/LEDIPASVIR (SOFOSBUFIR, LEDIPASVIR) [Suspect]
     Active Substance: LEDIPASVIR\SOFOSBUVIR
     Indication: HEPATITIS C
     Dosage: TABLET, 1 DOSAGE FORM DAILY
     Dates: start: 20131028, end: 20140121
  2. SPIRONOLACTONE (SPIRONOLACTONE) [Concomitant]
     Active Substance: SPIRONOLACTONE
  3. TYLENOL EXTRA STRENGTH (ACETAMINOPHEN) [Concomitant]
  4. LACTULOSE (LACTULOSE) [Concomitant]
     Active Substance: LACTULOSE
  5. RIBASPHERE [Suspect]
     Active Substance: RIBAVIRIN
     Indication: HEPATITIS C
     Dates: start: 20131028, end: 20131113
  6. ESTRADERM PATCH (ESTRADIOL TRANSDERMAL) [Concomitant]
  7. XIAFAXIN (RIFAXIMIN) [Concomitant]
  8. ZOFRAN (ONDANSETRON) [Concomitant]
  9. VITAMIN D [Concomitant]
     Active Substance: CHOLECALCIFEROL
  10. LASIX [Concomitant]
     Active Substance: FUROSEMIDE
  11. ESTRADERM PATCH (ESTRADIOL TRANSDERMAL) [Concomitant]

REACTIONS (1)
  - Hepatic encephalopathy [None]

NARRATIVE: CASE EVENT DATE: 20131108
